FAERS Safety Report 10241206 (Version 1)
Quarter: 2014Q2

REPORT INFORMATION
  Report Type: Spontaneous
  Country: FR (occurrence: FR)
  Receive Date: 20140617
  Receipt Date: 20140617
  Transmission Date: 20141212
  Serious: Yes (Hospitalization)
  Sender: FDA-Public Use
  Company Number: FR-ROCHE-1412802

PATIENT
  Age: 78 Year
  Sex: Male

DRUGS (13)
  1. ZELBORAF [Suspect]
     Indication: PRODUCT USED FOR UNKNOWN INDICATION
     Route: 048
     Dates: start: 20140310
  2. APROVEL [Concomitant]
     Route: 048
     Dates: end: 20140512
  3. ALLOPURINOL [Concomitant]
     Route: 065
     Dates: end: 20140520
  4. LANSOPRAZOLE [Concomitant]
     Route: 048
  5. AMLODIPINE [Concomitant]
     Route: 048
     Dates: end: 20140520
  6. IKOREL [Concomitant]
     Route: 048
     Dates: end: 20140520
  7. PLAVIX [Concomitant]
     Route: 048
     Dates: end: 20140515
  8. FUROSEMIDE [Concomitant]
     Route: 048
     Dates: end: 20140520
  9. TAHOR [Concomitant]
     Route: 048
     Dates: end: 20140520
  10. PARACETAMOL [Concomitant]
     Route: 048
  11. SERETIDE [Concomitant]
     Route: 055
     Dates: end: 20140420
  12. AIROMIR [Concomitant]
     Route: 055
  13. AERIUS [Concomitant]
     Route: 048

REACTIONS (1)
  - Renal failure chronic [Recovered/Resolved]
